FAERS Safety Report 6699098-X (Version None)
Quarter: 2010Q2

REPORT INFORMATION
  Report Type: 
  Country: None (occurrence: None)
  Receive Date: 20100423
  Receipt Date: 20100413
  Transmission Date: 20101027
  Serious: Yes (Hospitalization)
  Sender: FDA-Public Use
  Company Number: WAES 1004USA02580

PATIENT
  Age: 76 Year
  Sex: Male

DRUGS (6)
  1. ZETIA [Suspect]
     Indication: TYPE IIA HYPERLIPIDAEMIA
     Dosage: 10 MG/DAILY, PO
     Route: 048
     Dates: start: 20071029
  2. ASPIRIN [Concomitant]
  3. LIVALO [Concomitant]
  4. NORVASC [Concomitant]
  5. ROSUVASTATIN CALCIUM [Concomitant]
  6. TAMSULOSIN HYDROCHLORIDE [Concomitant]

REACTIONS (3)
  - ANGINA PECTORIS [None]
  - BLOOD TRIGLYCERIDES INCREASED [None]
  - CONDITION AGGRAVATED [None]
